FAERS Safety Report 6693154-8 (Version None)
Quarter: 2010Q2

REPORT INFORMATION
  Report Type: 
  Country: None (occurrence: None)
  Receive Date: 20100421
  Receipt Date: 20100421
  Transmission Date: 20101027
  Serious: Yes (Other)
  Sender: FDA-Public Use
  Company Number: None

PATIENT
  Age: 45 Year
  Sex: Male
  Weight: 127.0072 kg

DRUGS (1)
  1. ZYRTEC [Suspect]
     Indication: SINUSITIS

REACTIONS (1)
  - PRURITUS [None]
